FAERS Safety Report 10573039 (Version 1)
Quarter: 2014Q4

REPORT INFORMATION
  Report Type: Spontaneous
  Country: DE (occurrence: None)
  Receive Date: 20141106
  Receipt Date: 20141106
  Transmission Date: 20150529
  Serious: Yes (Hospitalization)
  Sender: FDA-Public Use
  Company Number: DE-H14001-14-01473

PATIENT
  Age: 23 Year
  Sex: Female
  Weight: 60 kg

DRUGS (6)
  1. OXYGESIC [Suspect]
     Active Substance: OXYCODONE
     Indication: PROCEDURAL PAIN
     Route: 048
     Dates: start: 201404
  2. CALCIUM BRAUSETABLETTEN [Concomitant]
  3. VANCOMYCIN [Suspect]
     Active Substance: VANCOMYCIN
     Indication: WOUND INFECTION STAPHYLOCOCCAL
     Route: 042
  4. DOXYCYCLINE. [Suspect]
     Active Substance: DOXYCYCLINE
     Indication: WOUND INFECTION STAPHYLOCOCCAL
     Route: 048
     Dates: start: 20141020
  5. VIGANTOLETTEN ( COLECALCIFEROL) [Concomitant]
  6. CLEXANE ( ENOXAPARIN SODIUM) [Concomitant]

REACTIONS (2)
  - Vomiting [None]
  - Rash [None]

NARRATIVE: CASE EVENT DATE: 20141020
